FAERS Safety Report 13249125 (Version 1)
Quarter: 2017Q1

REPORT INFORMATION
  Report Type: Spontaneous
  Country: US (occurrence: US)
  Receive Date: 20170218
  Receipt Date: 20170218
  Transmission Date: 20170428
  Serious: No
  Sender: FDA-Public Use
  Company Number: US-ALLERGAN-1653370US

PATIENT
  Age: 43 Year
  Sex: Male

DRUGS (2)
  1. RESTASIS [Suspect]
     Active Substance: CYCLOSPORINE
     Indication: SUPERIOR LIMBIC KERATOCONJUNCTIVITIS
     Dosage: 2 GTT, BID
     Route: 047
     Dates: start: 201603
  2. PREDNISOLONE ACETATE, 1.0% [Concomitant]
     Active Substance: PREDNISOLONE ACETATE
     Indication: EPISCLERITIS
     Dosage: UNK
     Route: 047

REACTIONS (5)
  - Ocular discomfort [Recovered/Resolved]
  - Ocular hyperaemia [Recovered/Resolved]
  - Off label use [Unknown]
  - Eye irritation [Recovered/Resolved]
  - Eye inflammation [Recovered/Resolved]

NARRATIVE: CASE EVENT DATE: 201604
